FAERS Safety Report 6249040-0 (Version None)
Quarter: 2009Q2

REPORT INFORMATION
  Report Type: 
  Country: None (occurrence: None)
  Receive Date: 20090625
  Receipt Date: 20090618
  Transmission Date: 20091009
  Serious: Yes (Other)
  Sender: FDA-Public Use
  Company Number: CHPA2009US13363

PATIENT
  Age: 40 Year
  Sex: Female
  Weight: 74.8 kg

DRUGS (3)
  1. VOLTAREN [Suspect]
     Indication: OSTEOARTHRITIS
     Dosage: 2 G, QID, TOPICAL
     Route: 061
     Dates: start: 20090603, end: 20090608
  2. VOLTAREN [Suspect]
     Indication: PAIN
     Dosage: 2 G, QID, TOPICAL
     Route: 061
     Dates: start: 20090603, end: 20090608
  3. DRUG THERAPY NOS (DRUG THERAPY NOS) [Concomitant]

REACTIONS (7)
  - ANXIETY [None]
  - BLOOD CHOLESTEROL INCREASED [None]
  - CATHETER RELATED INFECTION [None]
  - DYSPEPSIA [None]
  - ERUCTATION [None]
  - MYALGIA [None]
  - MYOCARDIAL INFARCTION [None]
